FAERS Safety Report 17367210 (Version 5)
Quarter: 2020Q1

REPORT INFORMATION
  Report Type: Spontaneous
  Country: US (occurrence: US)
  Receive Date: 20200204
  Receipt Date: 20200228
  Transmission Date: 20200409
  Serious: Yes (Other)
  Sender: FDA-Public Use
  Company Number: US-PFIZER INC-2020046423

PATIENT
  Age: 79 Year
  Sex: Female
  Weight: 122.9 kg

DRUGS (5)
  1. FLECTOR [Suspect]
     Active Substance: DICLOFENAC EPOLAMINE
     Indication: INTERVERTEBRAL DISC DEGENERATION
  2. CORTISONE [Concomitant]
     Active Substance: CORTISONE
     Dosage: AS NEEDED
  3. FLECTOR [Suspect]
     Active Substance: DICLOFENAC EPOLAMINE
     Indication: BACK PAIN
     Dosage: 2 PATCHES TO EITHER SIDE OF LOWER SPINE AND CHANGE EVERY 12 HOURS
     Route: 061
  4. FLECTOR [Suspect]
     Active Substance: DICLOFENAC EPOLAMINE
     Indication: SCIATICA
  5. FLECTOR [Suspect]
     Active Substance: DICLOFENAC EPOLAMINE
     Indication: ARTHRITIS

REACTIONS (2)
  - Mental impairment [Not Recovered/Not Resolved]
  - Drug ineffective [Unknown]
